FAERS Safety Report 10750360 (Version 3)
Quarter: 2015Q1

REPORT INFORMATION
  Report Type: Spontaneous
  Country: JP (occurrence: JP)
  Receive Date: 20150130
  Receipt Date: 20150210
  Transmission Date: 20150721
  Serious: Yes (Other)
  Sender: FDA-Public Use
  Company Number: JP-ROCHE-1527496

PATIENT
  Sex: Female

DRUGS (1)
  1. BONVIVA [Suspect]
     Active Substance: IBANDRONATE SODIUM
     Indication: OSTEOPOROSIS
     Dosage: LAST DOSE PRIOR TO AE ON : 10/DEC/2014
     Route: 042
     Dates: start: 20141112, end: 20141210

REACTIONS (5)
  - Malaise [Unknown]
  - Pyrexia [Unknown]
  - Pain in jaw [Unknown]
  - Headache [Unknown]
  - Toothache [Unknown]
